FAERS Safety Report 16884094 (Version 1)
Quarter: 2019Q4

REPORT INFORMATION
  Report Type: Spontaneous
  Country: US (occurrence: US)
  Receive Date: 20191004
  Receipt Date: 20191004
  Transmission Date: 20200122
  Serious: Yes (Hospitalization)
  Sender: FDA-Public Use
  Company Number: US-ROCHE-2424670

PATIENT
  Sex: Male
  Weight: 72 kg

DRUGS (2)
  1. ALECENSA [Suspect]
     Active Substance: ALECTINIB HYDROCHLORIDE
     Indication: LUNG NEOPLASM MALIGNANT
     Dosage: FOUR 150 MG CAPS (600 MG TOTAL) BID IN AM AND PM
     Route: 048
     Dates: start: 20190507
  2. ALECENSA [Suspect]
     Active Substance: ALECTINIB HYDROCHLORIDE
     Dosage: THREE 150 MG CAPS (450 MG TOTAL) BID IN AM AND PM ;
     Route: 048
     Dates: start: 20190722

REACTIONS (1)
  - Lung disorder [Unknown]
